FAERS Safety Report 8775615 (Version 1)
Quarter: 2012Q4

REPORT INFORMATION
  Report Type: 
  Country: US (occurrence: US)
  Receive Date: 20120909
  Receipt Date: 20120909
  Transmission Date: 20130627
  Serious: No
  Sender: FDA-Public Use
  Company Number: US-009507513-1209USA001925

PATIENT

DRUGS (3)
  1. ZETIA [Suspect]
     Indication: HYPERCHOLESTEROLAEMIA
     Dosage: 10 mg, UNK
     Route: 048
     Dates: start: 201103, end: 201205
  2. PRAVASTATIN SODIUM [Concomitant]
  3. GLIPIZIDE [Concomitant]

REACTIONS (3)
  - Tenderness [Recovering/Resolving]
  - Myalgia [Recovering/Resolving]
  - Asthenia [Recovering/Resolving]
